FAERS Safety Report 10587538 (Version 2)
Quarter: 2015Q2

REPORT INFORMATION
  Report Type: Spontaneous
  Country: US (occurrence: US)
  Receive Date: 20141117
  Receipt Date: 20150511
  Transmission Date: 20150821
  Serious: Yes (Hospitalization)
  Sender: FDA-Public Use
  Company Number: US-BAYER-2014-167898

PATIENT
  Age: 22 Year
  Sex: Female
  Weight: 63.49 kg

DRUGS (3)
  1. LO LOESTRIN FE [Concomitant]
     Active Substance: ETHINYL ESTRADIOL\NORETHINDRONE ACETATE
  2. MIRENA [Suspect]
     Active Substance: LEVONORGESTREL
     Indication: CONTRACEPTION
     Dosage: 20 MCG/24HR, CONT
     Route: 015
     Dates: start: 20110616, end: 20130227
  3. NUVARING [Concomitant]
     Active Substance: ETHINYL ESTRADIOL\ETONOGESTREL

REACTIONS (8)
  - Genital haemorrhage [None]
  - Abdominal pain lower [None]
  - Injury [None]
  - Device issue [None]
  - Uterine perforation [None]
  - Device difficult to use [None]
  - Scar [None]
  - Device dislocation [None]

NARRATIVE: CASE EVENT DATE: 2011
